FAERS Safety Report 5905743-6 (Version None)
Quarter: 2008Q4

REPORT INFORMATION
  Report Type: 
  Country: None (occurrence: None)
  Receive Date: 20081002
  Receipt Date: 20080925
  Transmission Date: 20090506
  Serious: Yes (Other)
  Sender: FDA-Public Use
  Company Number: ES-ASTRAZENECA-2008AC02560

PATIENT
  Age: 76 Year
  Sex: Female
  Weight: 51.7 kg

DRUGS (7)
  1. PULMICORT HFA [Suspect]
     Indication: ASTHMA
     Dosage: IN EVENING
     Route: 055
     Dates: start: 20080520, end: 20080523
  2. IDALPREM [Concomitant]
     Indication: DEPRESSION
     Dosage: HALF MIDDAY, 1 IN THE EVENING.
     Route: 048
     Dates: start: 19800101
  3. ALGIASDIN RETARD [Concomitant]
     Indication: PAIN
     Route: 048
     Dates: start: 19950101
  4. NEURONTIN [Concomitant]
     Indication: DEPRESSION
     Route: 048
     Dates: start: 20030101
  5. PLANTABEN [Concomitant]
     Indication: CONSTIPATION
     Route: 048
     Dates: start: 20020101
  6. ACTONEL [Concomitant]
     Indication: OSTEOPOROSIS
     Route: 048
     Dates: start: 20050101
  7. IDEOS [Concomitant]
     Indication: OSTEOPOROSIS
     Route: 048
     Dates: start: 19880101

REACTIONS (2)
  - CARDIAC MURMUR [None]
  - RESPIRATORY FAILURE [None]
